FAERS Safety Report 5772413-7 (Version None)
Quarter: 2008Q2

REPORT INFORMATION
  Report Type: 
  Country: None (occurrence: None)
  Receive Date: 20080613
  Receipt Date: 20080609
  Transmission Date: 20081010
  Serious: Yes (Hospitalization)
  Sender: FDA-Public Use
  Company Number: US-AVENTIS-200814963GDDC

PATIENT
  Age: 75 Year
  Sex: Male
  Weight: 74.6 kg

DRUGS (22)
  1. DOCETAXEL [Suspect]
     Dosage: DOSE: 35 ON DAYS 1,8, AND 15
     Route: 042
     Dates: start: 20080515, end: 20080515
  2. CODE UNBROKEN [Suspect]
     Route: 048
     Dates: start: 20080501, end: 20080518
  3. CLARITIN                           /00917501/ [Concomitant]
     Route: 048
  4. FENTANYL [Concomitant]
     Indication: PAIN
     Route: 062
  5. POTASSIUM CHLORIDE [Concomitant]
     Dosage: DOSE: 20 MEQ/PACKET
     Route: 048
  6. OMEPRAZOLE [Concomitant]
     Route: 048
  7. ACETAMINOPHEN AND HYDROCODONE BITARTRATE [Concomitant]
     Indication: PAIN
     Dosage: DOSE: 7.5MG/500MG 2 TABLETS EVERY 4 HOURS
     Route: 048
  8. DEXAMETHASONE TAB [Concomitant]
     Dosage: DOSE: 4 MG TWICE A DAY FOR 3 DAYS WHILE ON CHEMO
     Route: 048
  9. ONDANSETRON [Concomitant]
     Indication: NAUSEA
     Dosage: DOSE: 8 MG DAILY
     Route: 048
  10. ONDANSETRON [Concomitant]
     Indication: VOMITING
     Dosage: DOSE: 8 MG DAILY
     Route: 048
  11. DESYREL [Concomitant]
     Indication: INSOMNIA
     Dosage: DOSE: 50 MG EACH NIGHT
     Route: 048
  12. CODEINE W/GUAIFENESIN [Concomitant]
     Indication: COUGH
     Dosage: DOSE: 100 MG, 10MG/5ML
     Route: 048
  13. GUAIFENESIN DM [Concomitant]
     Indication: COUGH
     Dosage: DOSE: 100 MG/5 ML EVERY 6 HOURS
     Route: 048
  14. TRIPLE MIX (BENADRYL-MAALOX-LIDOCAINE) [Concomitant]
     Dosage: DOSE: 1 TABLESPOON EVERY 6 HOURS
  15. ZOLPIDEM [Concomitant]
     Indication: INSOMNIA
     Dosage: DOSE: 5 MG AT BEDTIME
     Route: 048
  16. VARDENAFIL [Concomitant]
     Dosage: DOSE: 20 MG
     Route: 048
  17. GLYBURIDE [Concomitant]
     Route: 048
  18. ACETYLCYSTEINE [Concomitant]
     Dosage: DOSE: 20% INHALATION SOLUTION- 3 ML 20% BY MOUTH
     Route: 055
  19. LOSARTAN POTASSIUM [Concomitant]
     Route: 048
  20. METOPROLOL [Concomitant]
     Route: 048
  21. ALBUTEROL SULFATE AND IPRATROPIUM BROMIDE [Concomitant]
     Dosage: DOSE: 90/18 MCG- INHALE 2 PUFFS EVERY 6 HOURS
     Route: 055
  22. ANTIHEMORRHOIDALS FOR TOPICAL USE [Concomitant]
     Dosage: DOSE QUANTITY: 1
     Route: 054

REACTIONS (4)
  - LUNG INFECTION [None]
  - LYMPHOPENIA [None]
  - PNEUMONIA [None]
  - PNEUMONITIS [None]
